FAERS Safety Report 6829391-9 (Version None)
Quarter: 2010Q3

REPORT INFORMATION
  Report Type: 
  Country: None (occurrence: None)
  Receive Date: 20100709
  Receipt Date: 20070304
  Transmission Date: 20110219
  Serious: No
  Sender: FDA-Public Use
  Company Number: US-PFIZER INC-2007015824

PATIENT
  Sex: Female
  Weight: 58.06 kg

DRUGS (5)
  1. CHANTIX [Interacting]
     Indication: SMOKING CESSATION THERAPY
     Dates: start: 20070221
  2. DILANTIN [Interacting]
     Indication: EPILEPSY
  3. BENADRYL [Suspect]
     Indication: PRURITUS
  4. RANITIDINE [Concomitant]
  5. TYLENOL PM [Concomitant]
     Indication: INSOMNIA

REACTIONS (5)
  - BLISTER [None]
  - DRUG INTERACTION [None]
  - PRURITUS [None]
  - SKIN IRRITATION [None]
  - URTICARIA [None]
